FAERS Safety Report 6141511-0 (Version None)
Quarter: 2009Q2

REPORT INFORMATION
  Report Type: 
  Country: None (occurrence: None)
  Receive Date: 20090402
  Receipt Date: 20090325
  Transmission Date: 20091009
  Serious: Yes (Hospitalization)
  Sender: FDA-Public Use
  Company Number: US-BAXTER-2009BH004750

PATIENT
  Age: 58 Year
  Sex: Female

DRUGS (4)
  1. DIANEAL [Suspect]
     Indication: RENAL FAILURE CHRONIC
     Route: 033
     Dates: start: 20090320, end: 20090331
  2. DIANEAL [Suspect]
     Indication: RENAL FAILURE CHRONIC
     Route: 033
     Dates: start: 20090320, end: 20090331
  3. DIANEAL [Suspect]
     Route: 033
     Dates: start: 20070331, end: 20090310
  4. DIANEAL [Suspect]
     Route: 033
     Dates: start: 20070331, end: 20090310

REACTIONS (2)
  - ARTERIOVENOUS FISTULA THROMBOSIS [None]
  - TREATMENT NONCOMPLIANCE [None]
